FAERS Safety Report 23284375 (Version 3)
Quarter: 2024Q1

REPORT INFORMATION
  Report Type: Spontaneous
  Country: US (occurrence: US)
  Receive Date: 20231211
  Receipt Date: 20240119
  Transmission Date: 20240410
  Serious: No
  Sender: FDA-Public Use
  Company Number: US-PFIZER INC-202300426545

PATIENT
  Age: 64 Year
  Sex: Male

DRUGS (9)
  1. XELJANZ XR [Suspect]
     Active Substance: TOFACITINIB CITRATE
     Indication: Rheumatoid arthritis
     Dosage: 11 MG, 1X/DAY
     Dates: start: 20230701
  2. FOLIC ACID [Concomitant]
     Active Substance: FOLIC ACID
     Dosage: STARTED 12 YEARS AGE
  3. DICLOFENAC [Concomitant]
     Active Substance: DICLOFENAC
     Dosage: STARTED 20 YEARS AGE
  4. FINASTERIDE [Concomitant]
     Active Substance: FINASTERIDE
     Dosage: STARTED 20 YEARS AGE
  5. HYDROCHLOROTHIAZIDE [Concomitant]
     Active Substance: HYDROCHLOROTHIAZIDE
     Dosage: STARTED 20 YEARS AGE
  6. METHOTREXATE [Concomitant]
     Active Substance: METHOTREXATE
     Dosage: NOT STILL TAKING
     Dates: start: 20220601
  7. METOPROLOL [Concomitant]
     Active Substance: METOPROLOL
     Dosage: STARTED 20 YEARS AGE
  8. ROSUVASTATIN [Concomitant]
     Active Substance: ROSUVASTATIN
     Dosage: STARTED 20 YEARS AGE
  9. TAMSULOSIN [Concomitant]
     Active Substance: TAMSULOSIN
     Dosage: STARTED 15 YEARS AGE

REACTIONS (2)
  - Gastrointestinal disorder [Recovered/Resolved]
  - Product residue present [Recovered/Resolved]

NARRATIVE: CASE EVENT DATE: 20230101
